FAERS Safety Report 12748315 (Version 1)
Quarter: 2016Q3

REPORT INFORMATION
  Report Type: Spontaneous
  Country: US (occurrence: US)
  Receive Date: 20160915
  Receipt Date: 20160915
  Transmission Date: 20161109
  Serious: No
  Sender: FDA-Public Use
  Company Number: US-ASTELLAS-2016US007147

PATIENT
  Age: 65 Year
  Sex: Male

DRUGS (1)
  1. XTANDI [Suspect]
     Active Substance: ENZALUTAMIDE
     Indication: BONE CANCER
     Route: 065

REACTIONS (4)
  - Back pain [Unknown]
  - Off label use [Unknown]
  - Dyspepsia [Unknown]
  - Influenza [Unknown]

NARRATIVE: CASE EVENT DATE: 201602
